FAERS Safety Report 10578691 (Version 1)
Quarter: 2014Q4

REPORT INFORMATION
  Report Type: Spontaneous
  Country: US (occurrence: None)
  Receive Date: 20141111
  Receipt Date: 20141111
  Transmission Date: 20150529
  Serious: Yes (Other)
  Sender: FDA-Public Use
  Company Number: None

PATIENT
  Age: 67 Year
  Sex: Male
  Weight: 96.16 kg

DRUGS (1)
  1. PRIMIDONE 50MG [Suspect]
     Active Substance: PRIMIDONE
     Indication: ESSENTIAL TREMOR
     Dosage: 1 PILL @DAY FOR 5 DAYS, THEN 2 , 1 @DAY 5DAYS
     Route: 048
     Dates: start: 20141105, end: 20141105

REACTIONS (5)
  - Seizure [None]
  - Hallucination [None]
  - Drug interaction [None]
  - Dizziness [None]
  - Vision blurred [None]

NARRATIVE: CASE EVENT DATE: 20141105
